FAERS Safety Report 24799891 (Version 1)
Quarter: 2025Q1

REPORT INFORMATION
  Report Type: Spontaneous
  Country: US (occurrence: None)
  Receive Date: 20250102
  Receipt Date: 20250102
  Transmission Date: 20250409
  Serious: Yes (Hospitalization)
  Sender: FDA-CTU
  Company Number: None

PATIENT
  Age: 16 Year
  Sex: Male

DRUGS (1)
  1. NPLATE [Suspect]
     Active Substance: ROMIPLOSTIM
     Indication: Immune thrombocytopenia
     Dosage: FREQUENCY : WEEKLY;?
     Route: 058
     Dates: start: 202404

REACTIONS (2)
  - Cystitis [None]
  - Transplantation complication [None]

NARRATIVE: CASE EVENT DATE: 20241206
